FAERS Safety Report 8231850-1 (Version None)
Quarter: 2012Q1

REPORT INFORMATION
  Report Type: 
  Country: None (occurrence: None)
  Receive Date: 20120323
  Receipt Date: 20120312
  Transmission Date: 20120608
  Serious: No
  Sender: FDA-Public Use
  Company Number: US-JNJFOC-20120308683

PATIENT
  Sex: Female
  Weight: 92 kg

DRUGS (39)
  1. ALBUTEROL [Concomitant]
     Route: 055
     Dates: start: 20071227
  2. AMIODARONE HYDROCHLORIDE [Concomitant]
     Route: 048
     Dates: start: 20020101
  3. CARTIA XT [Concomitant]
     Route: 048
     Dates: start: 20020101
  4. PREMARIN [Concomitant]
     Route: 048
     Dates: start: 20050301, end: 20090315
  5. DIOVAN [Concomitant]
     Route: 048
     Dates: start: 20080131, end: 20081030
  6. DIOVAN [Concomitant]
     Route: 048
     Dates: start: 20081031
  7. OXYCODONE HCL [Concomitant]
     Route: 048
     Dates: start: 20080129, end: 20080204
  8. CLOBETASOL PROPIONATE [Concomitant]
     Route: 061
     Dates: start: 20090111
  9. FOLIC ACID [Concomitant]
     Route: 048
     Dates: start: 19990101
  10. SULFASALAZINE [Concomitant]
     Route: 048
     Dates: start: 19990101
  11. LASIX [Concomitant]
     Route: 048
     Dates: start: 20080416, end: 20080516
  12. ZOCOR [Concomitant]
     Route: 048
     Dates: start: 20081031
  13. METHOTREXATE [Concomitant]
     Route: 048
     Dates: start: 20091030, end: 20100524
  14. METHOTREXATE [Concomitant]
     Route: 048
     Dates: start: 20100621, end: 20101011
  15. PLACEBO [Suspect]
     Indication: RHEUMATOID ARTHRITIS
     Route: 058
     Dates: start: 20070126, end: 20070419
  16. LASIX [Concomitant]
     Route: 048
     Dates: start: 20080517
  17. FOSAMAX [Concomitant]
     Route: 048
     Dates: start: 20040401, end: 20081030
  18. ASPIRIN [Concomitant]
     Route: 048
     Dates: start: 20050301
  19. METHOTREXATE [Concomitant]
     Route: 048
     Dates: start: 20090803, end: 20091029
  20. PREDNISONE TAB [Concomitant]
     Route: 048
     Dates: start: 20070212, end: 20070216
  21. PREDNISONE TAB [Concomitant]
     Route: 048
     Dates: start: 20070220, end: 20070607
  22. DIOVAN [Concomitant]
     Route: 048
     Dates: start: 20071015, end: 20080114
  23. OXYCODONE HCL [Concomitant]
     Route: 048
     Dates: start: 20080119, end: 20080128
  24. VITAMIN B-12 [Concomitant]
     Route: 048
     Dates: start: 20090518
  25. METHOTREXATE [Concomitant]
     Route: 048
     Dates: start: 20101206
  26. GOLIMUMAB [Suspect]
     Route: 058
     Dates: start: 20100805
  27. LANOXIN [Concomitant]
     Route: 048
     Dates: start: 20020101
  28. LASIX [Concomitant]
     Route: 048
     Dates: start: 20020301, end: 20080415
  29. PREDNISONE TAB [Concomitant]
     Route: 048
     Dates: start: 20070613
  30. DIOVAN [Concomitant]
     Route: 048
     Dates: start: 20080115, end: 20080130
  31. PREVACID [Concomitant]
     Route: 048
     Dates: start: 20020101
  32. POTASSIUM CHLORIDE [Concomitant]
     Route: 048
     Dates: start: 20040301
  33. ZOCOR [Concomitant]
     Route: 048
     Dates: start: 20040301, end: 20081030
  34. PREDNISONE TAB [Concomitant]
     Route: 048
     Dates: start: 20070217, end: 20070219
  35. GOLIMUMAB [Suspect]
     Indication: RHEUMATOID ARTHRITIS
     Route: 058
     Dates: start: 20070517
  36. SYNTHROID [Concomitant]
     Route: 048
     Dates: start: 19600101
  37. MS CONTIN [Concomitant]
     Route: 048
     Dates: start: 20041201, end: 20080215
  38. PREDNISONE TAB [Concomitant]
     Route: 048
     Dates: start: 20050101, end: 20070215
  39. PREDNISONE TAB [Concomitant]
     Route: 048
     Dates: start: 20070608, end: 20070612

REACTIONS (1)
  - SQUAMOUS CELL CARCINOMA [None]
